FAERS Safety Report 6013740-8 (Version None)
Quarter: 2008Q4

REPORT INFORMATION
  Report Type: 
  Country: None (occurrence: None)
  Receive Date: 20081219
  Receipt Date: 20081216
  Transmission Date: 20090506
  Serious: Yes (Other)
  Sender: FDA-Public Use
  Company Number: B0546918A

PATIENT
  Age: 9 Year
  Sex: Female
  Weight: 28 kg

DRUGS (4)
  1. VALTREX [Suspect]
     Indication: HERPES ZOSTER
     Dosage: 500MG THREE TIMES PER DAY
     Route: 048
     Dates: start: 20081002, end: 20081006
  2. CLARITIN REDITABS [Suspect]
     Dosage: 10MG PER DAY
     Route: 048
     Dates: start: 20081004, end: 20081006
  3. ARASENA-A [Concomitant]
     Route: 061
  4. GARASONE [Concomitant]
     Dosage: 1G PER DAY
     Route: 061
     Dates: start: 20081002, end: 20081006

REACTIONS (1)
  - ABNORMAL BEHAVIOUR [None]
